FAERS Safety Report 23505257 (Version 2)
Quarter: 2024Q1

REPORT INFORMATION
  Report Type: Spontaneous
  Country: US (occurrence: US)
  Receive Date: 20240209
  Receipt Date: 20240221
  Transmission Date: 20240409
  Serious: No
  Sender: FDA-Public Use
  Company Number: US-E2BLSMVVAL-SPO/USA/24/0001816

PATIENT
  Sex: Male

DRUGS (15)
  1. CLONIDINE [Suspect]
     Active Substance: CLONIDINE
     Indication: Product used for unknown indication
  2. CLONIDINE [Suspect]
     Active Substance: CLONIDINE
     Dosage: 2 DAILY AM AND PM
  3. CLONIDINE [Suspect]
     Active Substance: CLONIDINE
     Dosage: WEEKLY
     Dates: start: 20240125
  4. ALLOPURINOL [Concomitant]
     Active Substance: ALLOPURINOL
     Dosage: 1 DAILY
  5. ASPIRIN [Concomitant]
     Active Substance: ASPIRIN
     Dosage: 1 DAILY AM
  6. ATORVASTATIN [Concomitant]
     Active Substance: ATORVASTATIN
     Dosage: 1 DAILY AM
  7. CLOPIDOGREL [Concomitant]
     Active Substance: CLOPIDOGREL BISULFATE
     Dosage: 1 DAILY AM
  8. FINASTERIDE [Concomitant]
     Active Substance: FINASTERIDE
     Dosage: 1 DAILY MG
  9. HYDRALAZINE [Concomitant]
     Active Substance: HYDRALAZINE HYDROCHLORIDE
     Dosage: 2 DAILY AM AND PM
  10. HYDROCHLOROTHIAZIDE [Concomitant]
     Active Substance: HYDROCHLOROTHIAZIDE
     Dosage: 1 DAILY AM
  11. LOSARTAN [Concomitant]
     Active Substance: LOSARTAN
     Dosage: 2 DAILY AM AND PM
  12. POTASSIUM CHLORIDE [Concomitant]
     Active Substance: POTASSIUM CHLORIDE
  13. TOLTERODINE [Concomitant]
     Active Substance: TOLTERODINE
     Dosage: 1 DAILY AM
  14. TAMSULOSIN [Concomitant]
     Active Substance: TAMSULOSIN
     Dosage: 1 DAILY AM
  15. VERAPAMIL [Concomitant]
     Active Substance: VERAPAMIL HYDROCHLORIDE
     Dosage: 1 DAILY AM

REACTIONS (2)
  - Pruritus [Unknown]
  - Application site rash [Unknown]
